FAERS Safety Report 5165801-3 (Version None)
Quarter: 2006Q4

REPORT INFORMATION
  Report Type: 
  Country: None (occurrence: None)
  Receive Date: 20061128
  Receipt Date: 20061116
  Transmission Date: 20070319
  Serious: Yes (Death)
  Sender: FDA-Public Use
  Company Number: 231564

PATIENT
  Age: 75 Year
  Sex: Female

DRUGS (2)
  1. ACTIVASE [Suspect]
     Indication: CEREBRAL INFARCTION
     Dosage: 36.2 MG, SINGLE INTRAVENOUS
     Route: 042
     Dates: start: 20061011, end: 20061011
  2. ISOSORBIDE DINITRATE [Concomitant]

REACTIONS (4)
  - AORTIC DISSECTION [None]
  - BACK PAIN [None]
  - CHEST PAIN [None]
  - SHOCK [None]
